FAERS Safety Report 24463638 (Version 1)
Quarter: 2024Q4

REPORT INFORMATION
  Report Type: Report from Study
  Country: US (occurrence: US)
  Receive Date: 20241018
  Receipt Date: 20241018
  Transmission Date: 20250115
  Serious: No
  Sender: ROCHE
  Company Number: US-ROCHE-3362583

PATIENT
  Age: 50 Year
  Sex: Female

DRUGS (20)
  1. XOLAIR [Suspect]
     Active Substance: OMALIZUMAB
     Indication: Idiopathic urticaria
     Route: 058
  2. XOLAIR [Suspect]
     Active Substance: OMALIZUMAB
  3. AFRIN [Concomitant]
     Active Substance: OXYMETAZOLINE
     Dosage: USE 1-2 SPRAY TWICE A DAY BEFORE MEDICATED SPRAY
     Route: 045
  4. ALBUTEROL SULFATE [Concomitant]
     Active Substance: ALBUTEROL SULFATE
     Dosage: 2.5MG/3ML SOLUTION 3 ML (0.083%) 1 VIAL EVERY 4-6 HOURS AS NEEDED
  5. AZELASTINE [Concomitant]
     Active Substance: AZELASTINE
     Dosage: SPRAY 0.1 % (137MG) SPRAY TAKE 1-2 SPRAY TO EACH NOSTRIL
  6. EPIPEN [Concomitant]
     Active Substance: EPINEPHRINE
     Dosage: 0.3 MG AUTO INJECTION INJECT IN CASE A MEDICAL EMERGENCY
  7. FAMOTIDINE [Concomitant]
     Active Substance: FAMOTIDINE
  8. FLUTICASONE PROPIONATE [Concomitant]
     Active Substance: FLUTICASONE PROPIONATE
     Dosage: TAKE 2 SPRAY EACH NOSTRIL ONCE A DAY IN AM PREVENT SYMPTOMS
  9. LEVOTHYROXINE [Concomitant]
     Active Substance: LEVOTHYROXINE
     Dosage: TAKE 1 DAILY 2 HRS BEFORE OR AFTER EATING ONCE A DAY
  10. MONTELUKAST [Concomitant]
     Active Substance: MONTELUKAST
  11. SPIRIVA RESPIMAT [Concomitant]
     Active Substance: TIOTROPIUM BROMIDE
     Dosage: 2 PUFFS A ONCE A DAILY
  12. SYMBICORT [Concomitant]
     Active Substance: BUDESONIDE\FORMOTEROL FUMARATE DIHYDRATE
     Dosage: 4.5 MCG TWICE A DAILY
  13. ALBUTEROL SULFATE [Concomitant]
     Active Substance: ALBUTEROL SULFATE
     Dosage: INHALE 2 PUFF EVERY 4-6 HRS AS NEEDED
  14. CYSTEINE [Concomitant]
     Active Substance: CYSTEINE
  15. LORATADINE [Concomitant]
     Active Substance: LORATADINE
  16. LOSARTAN POTASSIUM [Concomitant]
     Active Substance: LOSARTAN POTASSIUM
  17. METFORMIN HYDROCHLORIDE [Concomitant]
     Active Substance: METFORMIN HYDROCHLORIDE
  18. OMEPRAZOLE [Concomitant]
     Active Substance: OMEPRAZOLE
     Dosage: FREQUENCY TEXT:BEFORE MEAL
  19. SALINE [Concomitant]
     Active Substance: SODIUM CHLORIDE
     Dosage: TAKE 2 SPRAY TO EACH NORSTIL
     Route: 045
  20. VENLAFAXINE HCL [Concomitant]
     Active Substance: VENLAFAXINE HYDROCHLORIDE
     Dosage: FREQUENCY TEXT:AT TAKE 1 CAPSULE AT NIGHT

REACTIONS (2)
  - Vitamin D deficiency [Unknown]
  - Hypothyroidism [Unknown]
